FAERS Safety Report 6403284-3 (Version None)
Quarter: 2009Q4

REPORT INFORMATION
  Report Type: 
  Country: None (occurrence: None)
  Receive Date: 20091016
  Receipt Date: 20091007
  Transmission Date: 20100525
  Serious: Yes (Hospitalization)
  Sender: FDA-Public Use
  Company Number: NZ-ASTRAZENECA-2009SE18807

PATIENT
  Age: 1015 Month
  Sex: Female

DRUGS (5)
  1. OMEPRAZOLE [Suspect]
     Indication: GASTROINTESTINAL HAEMORRHAGE
     Route: 048
     Dates: start: 20021122, end: 20030116
  2. ACETAMINOPHEN [Concomitant]
     Route: 048
  3. PREDNISONE TAB [Concomitant]
     Route: 048
  4. CALCIUM CARBONATE [Concomitant]
     Indication: OSTEOPOROSIS
     Route: 048
     Dates: start: 20021210
  5. ETIDRONATE DISODIUM [Concomitant]
     Indication: OSTEOPOROSIS
     Route: 048
     Dates: start: 20021210

REACTIONS (2)
  - RASH MACULO-PAPULAR [None]
  - SKIN INFECTION [None]
